FAERS Safety Report 10142107 (Version 2)
Quarter: 2014Q2

REPORT INFORMATION
  Report Type: Spontaneous
  Country: NL (occurrence: NL)
  Receive Date: 20140429
  Receipt Date: 20140505
  Transmission Date: 20141212
  Serious: Yes (Hospitalization)
  Sender: FDA-Public Use
  Company Number: NL-009507513-1404NLD013845

PATIENT
  Age: 69 Year
  Sex: Male

DRUGS (1)
  1. NITRO-DUR [Suspect]
     Dosage: STRENGTH: 40MG/10CM2
     Route: 062
     Dates: start: 2003, end: 201404

REACTIONS (3)
  - Adverse event [Unknown]
  - Pain in extremity [Unknown]
  - Heart rate increased [Unknown]
